FAERS Safety Report 18935706 (Version 3)
Quarter: 2021Q1

REPORT INFORMATION
  Report Type: Spontaneous
  Country: JP (occurrence: JP)
  Receive Date: 20210224
  Receipt Date: 20210314
  Transmission Date: 20210420
  Serious: No
  Sender: FDA-Public Use
  Company Number: JP-JNJFOC-20210225207

PATIENT
  Age: 62 Year
  Sex: Male

DRUGS (3)
  1. DUROTEP [Suspect]
     Active Substance: FENTANYL
     Indication: PAIN
     Dosage: 12.00 MCG/HR
     Route: 062
  2. DUROTEP [Suspect]
     Active Substance: FENTANYL
  3. DUROTEP [Suspect]
     Active Substance: FENTANYL
     Route: 062

REACTIONS (5)
  - Off label use [Unknown]
  - Inappropriate schedule of product administration [Unknown]
  - Product adhesion issue [Unknown]
  - Chest discomfort [Unknown]
  - Pruritus [Unknown]
